FAERS Safety Report 4901194-1 (Version None)
Quarter: 2006Q1

REPORT INFORMATION
  Report Type: 
  Country: None (occurrence: None)
  Receive Date: 20060202
  Receipt Date: 20060124
  Transmission Date: 20060701
  Serious: Yes (Hospitalization, Other)
  Sender: FDA-Public Use
  Company Number: 2006012781

PATIENT
  Sex: Female

DRUGS (5)
  1. CELEBREX [Suspect]
     Indication: OSTEOARTHRITIS
  2. ANTIINFLAMMATORY/ANTIRHEUMATIC PRODUCTS (ANTIINFLAMMATORY/ANTIRHEUMATI [Suspect]
     Indication: ILL-DEFINED DISORDER
  3. ESTORGENS (ESTROGENS) [Concomitant]
  4. VITAMIN B12 FOR INJECTION (CYANOCOBALAMIN) [Concomitant]
  5. ESTROGENS (ESTROGENS) [Concomitant]

REACTIONS (11)
  - BODY HEIGHT DECREASED [None]
  - COLON CANCER [None]
  - COLONIC POLYP [None]
  - EATING DISORDER [None]
  - EXOSTOSIS [None]
  - FIBROMYALGIA [None]
  - GASTRIC ULCER [None]
  - NECK PAIN [None]
  - OSTEOARTHRITIS [None]
  - STOMACH DISCOMFORT [None]
  - WEIGHT DECREASED [None]
